FAERS Safety Report 11596090 (Version 1)
Quarter: 2015Q4

REPORT INFORMATION
  Report Type: Report from Study
  Country: US (occurrence: US)
  Receive Date: 20151006
  Receipt Date: 20151006
  Transmission Date: 20160304
  Serious: Yes (Hospitalization)
  Sender: FDA-Public Use
  Company Number: US-BIOGENIDEC-2015BI134347

PATIENT
  Age: 59 Year
  Sex: Female

DRUGS (13)
  1. ESTRACE [Concomitant]
     Active Substance: ESTRADIOL
  2. VITAMIN B12 [Concomitant]
     Active Substance: CYANOCOBALAMIN
  3. NEURONTIN [Concomitant]
     Active Substance: GABAPENTIN
  4. TRICOR [Concomitant]
     Active Substance: FENOFIBRATE
  5. LIPITOR [Concomitant]
     Active Substance: ATORVASTATIN CALCIUM
  6. KLONOPIN [Concomitant]
     Active Substance: CLONAZEPAM
  7. FOLIC ACID. [Concomitant]
     Active Substance: FOLIC ACID
  8. SYNTHROID [Concomitant]
     Active Substance: LEVOTHYROXINE SODIUM
  9. LOVAZA [Concomitant]
     Active Substance: OMEGA-3-ACID ETHYL ESTERS
  10. AVONEX [Suspect]
     Active Substance: INTERFERON BETA-1A
     Indication: MULTIPLE SCLEROSIS
     Route: 030
     Dates: start: 20070313
  11. PROZAC [Concomitant]
     Active Substance: FLUOXETINE HYDROCHLORIDE
  12. HYDROCHLOROQUINE SULFATE [Concomitant]
  13. MIRAPEX [Concomitant]
     Active Substance: PRAMIPEXOLE DIHYDROCHLORIDE

REACTIONS (1)
  - Cardiac disorder [Unknown]
